FAERS Safety Report 10341514 (Version 2)
Quarter: 2014Q4

REPORT INFORMATION
  Report Type: Spontaneous
  Country: IT (occurrence: IT)
  Receive Date: 20140725
  Receipt Date: 20141109
  Transmission Date: 20150528
  Serious: Yes (Hospitalization)
  Sender: FDA-Public Use
  Company Number: IT-BRISTOL-MYERS SQUIBB COMPANY-21221627

PATIENT
  Age: 88 Year
  Sex: Male

DRUGS (4)
  1. COUMADIN [Suspect]
     Active Substance: WARFARIN SODIUM
     Dosage: 1 DF= 1 UNIT NOS
     Route: 048
     Dates: start: 20100101, end: 20140508
  2. IRON SUPPLEMENT [Concomitant]
     Active Substance: IRON
  3. ATENOLOL. [Concomitant]
     Active Substance: ATENOLOL
  4. ENOXAPARIN [Concomitant]
     Active Substance: ENOXAPARIN

REACTIONS (2)
  - Iron deficiency anaemia [Recovering/Resolving]
  - International normalised ratio increased [Recovering/Resolving]

NARRATIVE: CASE EVENT DATE: 20140508
